FAERS Safety Report 5335145-5 (Version None)
Quarter: 2007Q2

REPORT INFORMATION
  Report Type: 
  Country: None (occurrence: None)
  Receive Date: 20070525
  Receipt Date: 20070522
  Transmission Date: 20071010
  Serious: Yes (Disabling)
  Sender: FDA-Public Use
  Company Number: US-MERCK-0705USA04072

PATIENT
  Age: 50 Year
  Sex: Female

DRUGS (1)
  1. JANUVIA [Suspect]
     Indication: DIABETES MELLITUS
     Route: 065

REACTIONS (4)
  - ANTINUCLEAR ANTIBODY POSITIVE [None]
  - ARTHRALGIA [None]
  - JOINT SWELLING [None]
  - RED BLOOD CELL SEDIMENTATION RATE INCREASED [None]
